FAERS Safety Report 9907016 (Version 3)
Quarter: 2015Q3

REPORT INFORMATION
  Report Type: Spontaneous
  Country: US (occurrence: US)
  Receive Date: 20140218
  Receipt Date: 20150812
  Transmission Date: 20151125
  Serious: No
  Sender: FDA-Public Use
  Company Number: US-GILEAD-2012-0056052

PATIENT
  Age: 86 Year
  Sex: Male

DRUGS (3)
  1. LETAIRIS [Suspect]
     Active Substance: AMBRISENTAN
     Indication: SCLERODERMA
  2. OXYGEN. [Suspect]
     Active Substance: OXYGEN
  3. LETAIRIS [Suspect]
     Active Substance: AMBRISENTAN
     Indication: PULMONARY HYPERTENSION
     Dosage: 10 MG, UNK
     Route: 048
     Dates: start: 20120507, end: 20120601

REACTIONS (4)
  - Dizziness [Unknown]
  - Confusional state [Unknown]
  - Epistaxis [Unknown]
  - Amnesia [Unknown]

NARRATIVE: CASE EVENT DATE: 201205
